FAERS Safety Report 5151291-3 (Version None)
Quarter: 2006Q4

REPORT INFORMATION
  Report Type: 
  Country: None (occurrence: None)
  Receive Date: 20061113
  Receipt Date: 20061113
  Transmission Date: 20070319
  Serious: Yes (Hospitalization)
  Sender: FDA-Public Use
  Company Number: None

PATIENT
  Age: 45 Year
  Sex: Female
  Weight: 112.4921 kg

DRUGS (6)
  1. CHANTIX [Suspect]
     Indication: SMOKING CESSATION THERAPY
     Dosage: 1 MG BID PO
     Route: 048
     Dates: start: 20060922
  2. EFFEXOR XR [Concomitant]
  3. ADVAIR DISKUS 500/50 [Concomitant]
  4. GLIPIZIDE [Concomitant]
  5. ALBUTEROL [Concomitant]
  6. PROTONIX [Concomitant]

REACTIONS (2)
  - BLOOD GLUCOSE DECREASED [None]
  - GRAND MAL CONVULSION [None]
